FAERS Safety Report 7071292-8 (Version None)
Quarter: 2010Q4

REPORT INFORMATION
  Report Type: 
  Country: None (occurrence: None)
  Receive Date: 20101029
  Receipt Date: 20100817
  Transmission Date: 20110411
  Serious: No
  Sender: FDA-Public Use
  Company Number: A0876343A

PATIENT
  Age: 79 Year
  Sex: Male

DRUGS (2)
  1. FLOVENT [Suspect]
     Dosage: 1PUFF PER DAY
     Route: 055
     Dates: start: 20090801
  2. SPIRIVA [Concomitant]

REACTIONS (1)
  - DRUG INEFFECTIVE [None]
